FAERS Safety Report 8763615 (Version 2)
Quarter: 2012Q4

REPORT INFORMATION
  Report Type: Spontaneous
  Country: US (occurrence: None)
  Receive Date: 20120827
  Receipt Date: 20120906
  Transmission Date: 20130627
  Serious: Yes (Life-Threatening, Hospitalization, Other)
  Sender: FDA-Public Use
  Company Number: 2012P1053964

PATIENT
  Age: 79 Year
  Sex: Female
  Weight: 67.13 kg

DRUGS (12)
  1. WARFARIN SODIUM [Suspect]
     Indication: CLOT BLOOD
     Route: 048
     Dates: start: 200710
  2. WARFARIN SODIUM [Suspect]
     Indication: CLOT BLOOD
     Route: 048
     Dates: start: 200710
  3. NITROGLYCERIN PATCHES [Suspect]
     Dates: start: 200906
  4. MORPHINE [Suspect]
  5. UNSPECIFIED ANTIBIOTICS [Suspect]
     Indication: URINARY TRACT INFECTION
  6. SOTALOL [Concomitant]
  7. NORVASC [Concomitant]
  8. DIOVAN [Concomitant]
  9. PRAVASTATIN [Concomitant]
  10. ASPIRIN [Concomitant]
  11. ZETIA [Concomitant]
  12. INSULIN [Concomitant]

REACTIONS (9)
  - Prothrombin time abnormal [None]
  - Blood disorder [None]
  - Hallucination, visual [None]
  - Blood pressure abnormal [None]
  - Cardiac arrest [None]
  - Arrhythmia [None]
  - Urinary incontinence [None]
  - Malaise [None]
  - Visual acuity reduced [None]
